FAERS Safety Report 9257437 (Version 4)
Quarter: 2013Q4

REPORT INFORMATION
  Report Type: Spontaneous
  Country: US (occurrence: US)
  Receive Date: 20130426
  Receipt Date: 20131018
  Transmission Date: 20140711
  Serious: Yes (Other)
  Sender: FDA-Public Use
  Company Number: US-ASTRAZENECA-2013SE27561

PATIENT
  Age: 815 Month
  Sex: Female
  Weight: 49.9 kg

DRUGS (22)
  1. NEXIUM [Suspect]
     Indication: GASTROOESOPHAGEAL REFLUX DISEASE
     Dosage: ONCE A DAY
     Route: 048
  2. NEXIUM [Suspect]
     Indication: GASTROOESOPHAGEAL REFLUX DISEASE
     Route: 048
     Dates: start: 20060615
  3. NEXIUM [Suspect]
     Indication: GASTROOESOPHAGEAL REFLUX DISEASE
     Route: 048
     Dates: start: 200608
  4. PRILOSEC [Suspect]
     Indication: GASTROOESOPHAGEAL REFLUX DISEASE
     Dosage: AT BED TIME
     Route: 048
  5. PRILOSEC OTC [Suspect]
     Indication: GASTROOESOPHAGEAL REFLUX DISEASE
     Route: 048
     Dates: start: 2006
  6. ROLAIDS [Concomitant]
     Indication: GASTROOESOPHAGEAL REFLUX DISEASE
     Dosage: 2 TABLETS PER DAY
  7. RANTAC [Concomitant]
     Indication: GASTROOESOPHAGEAL REFLUX DISEASE
     Dosage: AT BEDTIME OR NEEDED
     Dates: start: 2006
  8. PEPCID [Concomitant]
  9. THYRONORM [Concomitant]
     Indication: HYPOTHYROIDISM
  10. VIT C [Concomitant]
  11. VIT E [Concomitant]
  12. GLUCOSAMINE [Concomitant]
  13. CHONDROITIN COMPLEX [Concomitant]
  14. VITAMIN B COMPLEX [Concomitant]
  15. CALCIUM CITRATE [Concomitant]
  16. MSM [Concomitant]
  17. TYLENOL [Concomitant]
     Dosage: WHEN NEEDED
  18. DIAZEPAM [Concomitant]
     Dosage: WHEN NEEDED
  19. DIAZEPAM [Concomitant]
     Dates: start: 20050502
  20. FLUTICASONE [Concomitant]
  21. HYDROCORTISONE [Concomitant]
     Dates: start: 20070201
  22. MELOX [Concomitant]
     Dosage: AS NEEDED

REACTIONS (10)
  - Fractured coccyx [Unknown]
  - Spinal column injury [Unknown]
  - Fall [Unknown]
  - Coccydynia [Unknown]
  - Osteoporosis [Unknown]
  - Bone disorder [Unknown]
  - Arthritis [Unknown]
  - Cataract [Unknown]
  - Hypothyroidism [Unknown]
  - Osteopenia [Unknown]
